FAERS Safety Report 9284592 (Version 3)
Quarter: 2013Q3

REPORT INFORMATION
  Report Type: Report from Study
  Country: JP (occurrence: JP)
  Receive Date: 20130512
  Receipt Date: 20130821
  Transmission Date: 20140515
  Serious: Yes (Other)
  Sender: FDA-Public Use
  Company Number: JP-OTSUKA-JP-2013-11278

PATIENT
  Age: 78 Year
  Sex: Male
  Weight: 80.3 kg

DRUGS (9)
  1. SAMSCA [Suspect]
     Indication: FLUID RETENTION
     Dosage: 15 MG MILLIGRAM(S), QAM
     Route: 048
     Dates: start: 20120118, end: 20120124
  2. DIOVAN [Concomitant]
     Dosage: 80 MG MILLIGRAM(S), DAILY DOSE
     Route: 048
  3. LUPRAC [Concomitant]
     Indication: CARDIAC FAILURE
     Dosage: 4 MG MILLIGRAM(S), DAILY DOSE
     Route: 048
  4. ALDACTONE A [Concomitant]
     Indication: CARDIAC FAILURE
     Dosage: 25 MG MILLIGRAM(S), DAILY DOSE
     Route: 048
  5. LASIX [Concomitant]
     Indication: CARDIAC FAILURE
     Dosage: 60 MG MILLIGRAM(S), DAILY DOSE
     Route: 048
  6. PIMOBENDAN [Concomitant]
     Indication: CARDIAC FAILURE
     Dosage: 5 MG MILLIGRAM(S), DAILY DOSE
     Route: 048
  7. DIART [Concomitant]
     Indication: CARDIAC FAILURE
     Dosage: 30 MG MILLIGRAM(S), DAILY DOSE
     Route: 048
  8. WARFARIN [Concomitant]
     Indication: PROPHYLAXIS
     Dosage: 2 MG MILLIGRAM(S), DAILY DOSE
     Route: 048
  9. TAKEPRON [Concomitant]
     Indication: PROPHYLAXIS
     Dosage: 15 MG MILLIGRAM(S), DAILY DOSE
     Route: 048

REACTIONS (1)
  - Blood urea increased [Not Recovered/Not Resolved]
